FAERS Safety Report 18051259 (Version 1)
Quarter: 2020Q3

REPORT INFORMATION
  Report Type: Spontaneous
  Country: US (occurrence: US)
  Receive Date: 20200721
  Receipt Date: 20200721
  Transmission Date: 20201103
  Serious: Yes (Hospitalization)
  Sender: FDA-Public Use
  Company Number: US-ROCHE-2642685

PATIENT
  Age: 76 Year
  Sex: Female

DRUGS (13)
  1. DILTIAZEM. [Concomitant]
     Active Substance: DILTIAZEM
  2. CEFDINIR. [Concomitant]
     Active Substance: CEFDINIR
  3. CEFUROXIME. [Concomitant]
     Active Substance: CEFUROXIME
  4. DOXYCYCLINE HYCLATE. [Concomitant]
     Active Substance: DOXYCYCLINE HYCLATE
  5. ESBRIET [Suspect]
     Active Substance: PIRFENIDONE
     Indication: IDIOPATHIC PULMONARY FIBROSIS
     Route: 048
     Dates: start: 20190328
  6. ASPIRIN. [Concomitant]
     Active Substance: ASPIRIN
  7. BREO ELLIPTA [Concomitant]
     Active Substance: FLUTICASONE FUROATE\VILANTEROL TRIFENATATE
  8. PROAIR HFA [Concomitant]
     Active Substance: ALBUTEROL SULFATE
  9. HYDROXYZINE PAMOATE. [Concomitant]
     Active Substance: HYDROXYZINE PAMOATE
  10. ELIQUIS [Concomitant]
     Active Substance: APIXABAN
  11. LOVASTATIN. [Concomitant]
     Active Substance: LOVASTATIN
  12. PREDNISONE. [Concomitant]
     Active Substance: PREDNISONE
  13. TRIAMCINOLONE [Concomitant]
     Active Substance: TRIAMCINOLONE

REACTIONS (3)
  - Therapeutic procedure [Unknown]
  - Blood pressure increased [Unknown]
  - Cough [Unknown]

NARRATIVE: CASE EVENT DATE: 202006
